FAERS Safety Report 8976539 (Version 6)
Quarter: 2014Q1

REPORT INFORMATION
  Report Type: Report from Study
  Country: BR (occurrence: BR)
  Receive Date: 20121220
  Receipt Date: 20140128
  Transmission Date: 20141002
  Serious: Yes (Hospitalization, Other)
  Sender: FDA-Public Use
  Company Number: PHHY2012BR116683

PATIENT
  Age: 56 Year
  Sex: Female
  Weight: 68 kg

DRUGS (17)
  1. SANDOSTATIN LAR [Suspect]
     Indication: ACROMEGALY
     Dosage: 10 MG, EVERY MONTH
     Route: 030
     Dates: start: 200410
  2. SANDOSTATIN LAR [Suspect]
     Dosage: 20 MG, EVERY MONTH
     Route: 030
     Dates: start: 20041010
  3. SANDOSTATIN LAR [Suspect]
     Dosage: 30 MG, EVERY MONTH
     Route: 030
  4. SANDOSTATIN LAR [Suspect]
     Dosage: 10 MG, EVERY MONTH
     Route: 030
  5. SANDOSTATIN LAR [Suspect]
     Dosage: 20 MG, UNK
     Route: 030
     Dates: start: 20041010
  6. SANDOSTATIN LAR [Suspect]
     Dosage: 30 MG, UNK
     Route: 030
  7. SANDOSTATIN LAR [Suspect]
     Dosage: 10 MG, UNK
     Route: 030
  8. SANDOSTATIN LAR [Suspect]
     Dosage: 10 MG, UNK
     Route: 030
     Dates: start: 20130729
  9. LIPITOR [Concomitant]
     Indication: BLOOD CHOLESTEROL INCREASED
     Dosage: 10 MG, QD
     Route: 048
  10. PREDNISONE [Concomitant]
     Indication: PAIN
     Dosage: UNK MG, UNK
     Route: 048
  11. PREDNISONE [Concomitant]
     Indication: ASTHENIA
  12. PREDNISONE [Concomitant]
     Indication: ABASIA
  13. CLORANA [Concomitant]
     Indication: HYPERTENSION
     Dosage: 50 MG, QD
  14. LOSARTAN [Concomitant]
     Indication: HYPERTENSION
     Dosage: 50 MG, QD
     Route: 048
  15. ATENOLOL [Concomitant]
     Indication: HYPERTENSION
     Dosage: 25 MG, QD
     Route: 048
  16. HYDROCHLOROTHIAZIDE [Concomitant]
     Dosage: UNK UKN, UNK
  17. VOLTAREN ^NOVARTIS^ [Concomitant]
     Indication: PAIN
     Dosage: UNK UKN, UNK

REACTIONS (25)
  - Syncope [Not Recovered/Not Resolved]
  - Abasia [Not Recovered/Not Resolved]
  - Asthenia [Not Recovered/Not Resolved]
  - Cerebral disorder [Not Recovered/Not Resolved]
  - Feeling abnormal [Not Recovered/Not Resolved]
  - Hypokinesia [Not Recovered/Not Resolved]
  - Nail disorder [Not Recovered/Not Resolved]
  - Memory impairment [Not Recovered/Not Resolved]
  - Blood thyroid stimulating hormone decreased [Not Recovered/Not Resolved]
  - Female sex hormone level abnormal [Not Recovered/Not Resolved]
  - Pain [Not Recovered/Not Resolved]
  - Hypothyroidism [Not Recovered/Not Resolved]
  - Nausea [Not Recovered/Not Resolved]
  - Weight decreased [Not Recovered/Not Resolved]
  - Depression [Not Recovered/Not Resolved]
  - Alopecia [Not Recovered/Not Resolved]
  - Sedation [Not Recovered/Not Resolved]
  - Depressed mood [Not Recovered/Not Resolved]
  - Eating disorder [Not Recovered/Not Resolved]
  - Dysstasia [Not Recovered/Not Resolved]
  - Calcium deficiency [Not Recovered/Not Resolved]
  - Amnesia [Not Recovered/Not Resolved]
  - Dyspnoea [Not Recovered/Not Resolved]
  - Fatigue [Not Recovered/Not Resolved]
  - Malaise [Not Recovered/Not Resolved]
